FAERS Safety Report 25146317 (Version 2)
Quarter: 2025Q2

REPORT INFORMATION
  Report Type: Spontaneous
  Country: PR (occurrence: PR)
  Receive Date: 20250401
  Receipt Date: 20250424
  Transmission Date: 20250716
  Serious: No
  Sender: JOHNSON AND JOHNSON
  Company Number: PR-JNJFOC-20250346949

PATIENT
  Age: 74 Year
  Sex: Male
  Weight: 86.18 kg

DRUGS (1)
  1. ERLEADA [Suspect]
     Active Substance: APALUTAMIDE
     Indication: Prostate cancer
     Route: 048

REACTIONS (1)
  - Prostatic specific antigen increased [Recovering/Resolving]
